FAERS Safety Report 19511563 (Version 1)
Quarter: 2021Q3

REPORT INFORMATION
  Report Type: Spontaneous
  Country: US (occurrence: US)
  Receive Date: 20210709
  Receipt Date: 20210709
  Transmission Date: 20211014
  Serious: Yes (Death)
  Sender: FDA-Public Use
  Company Number: None

PATIENT
  Age: 68 Year
  Sex: Female
  Weight: 111.78 kg

DRUGS (18)
  1. GABAPENTIN 300MG [Concomitant]
     Active Substance: GABAPENTIN
  2. ACETAMINOPHEN 325MG [Concomitant]
  3. LETROZOLE 2.5MG [Concomitant]
     Active Substance: LETROZOLE
  4. METFORMIN 500MG [Concomitant]
     Active Substance: METFORMIN HYDROCHLORIDE
  5. ASPIRIN 81MG [Concomitant]
     Active Substance: ASPIRIN
  6. LISINOPRIL 20 AND 2.5MG [Concomitant]
  7. VITAMIN D3 [Concomitant]
     Active Substance: CHOLECALCIFEROL
  8. HUMALOG MIX 50?50 [Concomitant]
  9. TOPAMAX SPRINKLE 15MG [Concomitant]
  10. TRULICITY 075MG/0.5ML [Concomitant]
  11. IBRANCE [Suspect]
     Active Substance: PALBOCICLIB
     Indication: BREAST CANCER FEMALE
     Dosage: ?          OTHER FREQUENCY:QDX21 DAYS, 7 OFF;?
     Route: 048
     Dates: start: 20200819, end: 20210701
  12. CLARAVIS 40MG [Concomitant]
  13. ELAVIL OTC SLEEP [Concomitant]
  14. LIPITOR [Concomitant]
     Active Substance: ATORVASTATIN CALCIUM
  15. LANTUS SOLOSTAR 100UNIT/ML [Concomitant]
  16. ONDANSETRON 8MG [Concomitant]
     Active Substance: ONDANSETRON
  17. VITAMIN B12 [Concomitant]
     Active Substance: CYANOCOBALAMIN
  18. MELOXICAM 15MG [Concomitant]
     Active Substance: MELOXICAM

REACTIONS (1)
  - Death [None]

NARRATIVE: CASE EVENT DATE: 20210701
